FAERS Safety Report 8430508-3 (Version None)
Quarter: 2012Q2

REPORT INFORMATION
  Report Type: 
  Country: None (occurrence: None)
  Receive Date: 20120612
  Receipt Date: 20120601
  Transmission Date: 20120825
  Serious: Yes (Other)
  Sender: FDA-Public Use
  Company Number: CA-JNJFOC-20120411730

PATIENT
  Sex: Male
  Weight: 73.4 kg

DRUGS (3)
  1. PREDNISONE [Concomitant]
     Route: 065
  2. ESOMEPRAZOLE MAGNESIUM [Concomitant]
     Route: 065
  3. REMICADE [Suspect]
     Indication: CROHN'S DISEASE
     Route: 042
     Dates: start: 20120309

REACTIONS (3)
  - DIARRHOEA HAEMORRHAGIC [None]
  - ANAL FISSURE [None]
  - HAEMOGLOBIN DECREASED [None]
